FAERS Safety Report 8967960 (Version 1)
Quarter: 2012Q4

REPORT INFORMATION
  Report Type: Report from Study
  Country: US (occurrence: US)
  Receive Date: 20121217
  Receipt Date: 20121217
  Transmission Date: 20130627
  Serious: Yes (Hospitalization)
  Sender: FDA-Public Use
  Company Number: US-BRISTOL-MYERS SQUIBB COMPANY-17195769

PATIENT
  Age: 65 Year
  Sex: Male
  Weight: 77.3 kg

DRUGS (14)
  1. COUMADIN [Suspect]
  2. LISINOPRIL [Suspect]
  3. COREG [Suspect]
  4. PREDNISONE [Suspect]
  5. LANOXIN [Suspect]
  6. AMIODARONE [Suspect]
  7. VICODIN [Suspect]
  8. AMBIEN [Suspect]
  9. NEXIUM [Suspect]
  10. LASIX [Suspect]
  11. ASPIRIN [Suspect]
  12. ZOCOR [Suspect]
  13. ATIVAN [Suspect]
  14. RITUXIMAB [Concomitant]
     Indication: RHEUMATOID ARTHRITIS
     Dosage: Ongoing.Last dose on 15Oct2007
     Route: 042
     Dates: start: 20071003

REACTIONS (1)
  - Pneumonia [Recovered/Resolved]
